FAERS Safety Report 4752558-0 (Version None)
Quarter: 2005Q3

REPORT INFORMATION
  Report Type: 
  Country: None (occurrence: None)
  Receive Date: 20050823
  Receipt Date: 20050808
  Transmission Date: 20060218
  Serious: Yes (Other)
  Sender: FDA-Public Use
  Company Number: 8011355

PATIENT
  Sex: Female

DRUGS (4)
  1. KEPPRA [Suspect]
     Indication: EPILEPSY
  2. VALPROIC ACID [Suspect]
     Indication: EPILEPSY
  3. ORFIRIL /00228501/ [Suspect]
     Indication: EPILEPSY
  4. TRIMETHOPRIM [Suspect]
     Indication: URINARY TRACT INFECTION

REACTIONS (3)
  - AFFECTIVE DISORDER [None]
  - GASTROINTESTINAL DISORDER [None]
  - PERIPHERAL ISCHAEMIA [None]
